FAERS Safety Report 4838203-4 (Version None)
Quarter: 2005Q4

REPORT INFORMATION
  Report Type: 
  Country: None (occurrence: None)
  Receive Date: 20051123
  Receipt Date: 20051021
  Transmission Date: 20060501
  Serious: Yes (Death)
  Sender: FDA-Public Use
  Company Number: 2005-CZ-00958

PATIENT
  Sex: Female

DRUGS (8)
  1. SALBUTAMOL [Suspect]
     Dosage: 2 PUFFS QDS PRN, INHALATION
     Route: 055
  2. FUROSEMIDE TABLETS BP 40MG (FUROSEMIDE) [Suspect]
     Dosage: 40 MG OD, ORAL
     Route: 048
  3. AMINOPHYLLINE [Suspect]
     Dosage: 225 MG
  4. IPRATROPIUM BROMIDE [Suspect]
     Indication: CHRONIC OBSTRUCTIVE PULMONARY DISEASE
     Dosage: 500 MCG 4 TIMES A DAY, INHALATION
     Route: 055
  5. CARBOCISTEINE [Suspect]
     Dosage: 375 MG TWO TDS
  6. LEVOFLOXACIN [Suspect]
     Dosage: 1000 MG, 500 MG BD
  7. TRAMADOL HCL [Suspect]
     Dosage: 50 MG TDS
  8. PREDNISOLONE [Suspect]
     Dosage: 5 MG

REACTIONS (1)
  - INFECTIVE EXACERBATION OF CHRONIC OBSTRUCTIVE AIRWAYS DISEASE [None]
